FAERS Safety Report 5150642-3 (Version None)
Quarter: 2006Q4

REPORT INFORMATION
  Report Type: 
  Country: None (occurrence: None)
  Receive Date: 20061114
  Receipt Date: 20061106
  Transmission Date: 20070319
  Serious: Yes (Hospitalization, Other)
  Sender: FDA-Public Use
  Company Number: 2006AC02050

PATIENT
  Age: 34 Year
  Sex: Female

DRUGS (6)
  1. QUETIAPINE FUMARATE [Suspect]
     Route: 048
  2. ATENOLOL [Suspect]
  3. SERTRALINE [Suspect]
  4. VALPROATE SODIUM [Suspect]
  5. IBUPROFEN [Suspect]
  6. RABEPRAZOLE SODIUM [Suspect]

REACTIONS (4)
  - DEPRESSED LEVEL OF CONSCIOUSNESS [None]
  - HYPERAMMONAEMIA [None]
  - MULTIPLE DRUG OVERDOSE [None]
  - THERAPY NON-RESPONDER [None]
